FAERS Safety Report 6814092-3 (Version None)
Quarter: 2010Q3

REPORT INFORMATION
  Report Type: 
  Country: None (occurrence: None)
  Receive Date: 20100702
  Receipt Date: 20090917
  Transmission Date: 20110219
  Serious: No
  Sender: FDA-Public Use
  Company Number: A0807863A

PATIENT
  Age: 3 Year
  Sex: Male

DRUGS (6)
  1. ADVAIR DISKUS 100/50 [Suspect]
     Indication: ASTHMA
     Route: 055
     Dates: start: 20060101
  2. ALBUTEROL [Concomitant]
  3. PRILOSEC [Concomitant]
  4. ZYRTEC [Concomitant]
  5. FLOVENT [Concomitant]
  6. UNKNOWN MEDICATION [Concomitant]
     Route: 061

REACTIONS (1)
  - DRUG PRESCRIBING ERROR [None]
